FAERS Safety Report 7715992-2 (Version None)
Quarter: 2011Q3

REPORT INFORMATION
  Report Type: 
  Country: None (occurrence: None)
  Receive Date: 20110822
  Receipt Date: 20110809
  Transmission Date: 20111222
  Serious: Yes (Other)
  Sender: FDA-Public Use
  Company Number: CIP11001409

PATIENT
  Age: 80 Year
  Sex: Female

DRUGS (7)
  1. ACTONEL [Suspect]
     Indication: OSTEOPOROSIS
     Dosage: 2.5 MG DAILY, ORAL
     Route: 048
     Dates: start: 20100426, end: 20110407
  2. GOREI-SAN (HERBAL EXTRACT NOS) [Concomitant]
  3. CALCICHEW (CALCIUM CARBONATE) [Concomitant]
  4. FAMOSTAGINE (FAMOTIDINE0 [Concomitant]
  5. CALCIUM + VITAMIN D (CALCIUM, COLECALCIFEROL) [Concomitant]
  6. ASZES NICHIIKO (FELBINAC) [Concomitant]
  7. DRUGS FOR FUNCTIONAL GASTROINTEST. DISORDERS [Concomitant]

REACTIONS (19)
  - UPPER RESPIRATORY TRACT INFLAMMATION [None]
  - NASOPHARYNGITIS [None]
  - CONSTIPATION [None]
  - MUSCLE SPASMS [None]
  - INTERSTITIAL LUNG DISEASE [None]
  - DYSPNOEA [None]
  - PRODUCTIVE COUGH [None]
  - DYSPNOEA EXERTIONAL [None]
  - LYMPHADENITIS [None]
  - PAIN IN EXTREMITY [None]
  - ASTHMA [None]
  - BRONCHITIS [None]
  - THROAT IRRITATION [None]
  - CHEST DISCOMFORT [None]
  - COUGH [None]
  - CHEST PAIN [None]
  - CHRONIC OBSTRUCTIVE PULMONARY DISEASE [None]
  - OROPHARYNGEAL PAIN [None]
  - MUSCULOSKELETAL PAIN [None]
